FAERS Safety Report 17467286 (Version 1)
Quarter: 2020Q1

REPORT INFORMATION
  Report Type: Spontaneous
  Country: US (occurrence: US)
  Receive Date: 20200226
  Receipt Date: 20200226
  Transmission Date: 20200409
  Serious: Yes (Hospitalization)
  Sender: FDA-Public Use
  Company Number: None

PATIENT
  Age: 61 Year
  Sex: Male

DRUGS (3)
  1. ABIRATERONE ACETATE. [Suspect]
     Active Substance: ABIRATERONE ACETATE
     Indication: PROSTATE CANCER
     Route: 048
     Dates: start: 20200207
  2. PREDNISONE. [Concomitant]
     Active Substance: PREDNISONE
  3. ONDANESTRON [Concomitant]

REACTIONS (3)
  - Therapy cessation [None]
  - Asthenia [None]
  - Neoplasm malignant [None]

NARRATIVE: CASE EVENT DATE: 20200224
